FAERS Safety Report 5347115-1 (Version None)
Quarter: 2007Q2

REPORT INFORMATION
  Report Type: 
  Country: None (occurrence: None)
  Receive Date: 20070604
  Receipt Date: 20070522
  Transmission Date: 20071010
  Serious: Yes (Life-Threatening, Hospitalization)
  Sender: FDA-Public Use
  Company Number: GXKR2007US04566

PATIENT
  Age: 56 Year
  Sex: Female

DRUGS (2)
  1. PREDNISONE [Suspect]
     Indication: IMMUNOSUPPRESSION
     Dosage: 2.5 MG
  2. TACROLIMUS [Concomitant]

REACTIONS (7)
  - CARDIAC FAILURE [None]
  - CONTINUOUS HAEMODIAFILTRATION [None]
  - HYPOTENSION [None]
  - JUGULAR VEIN DISTENSION [None]
  - PULMONARY HYPERTENSION [None]
  - RENAL FAILURE ACUTE [None]
  - SCLERODERMA RENAL CRISIS [None]
